FAERS Safety Report 16966510 (Version 2)
Quarter: 2019Q4

REPORT INFORMATION
  Report Type: Report from Study
  Country: US (occurrence: US)
  Receive Date: 20191028
  Receipt Date: 20191113
  Transmission Date: 20200122
  Serious: Yes (Death, Hospitalization, Disabling, Other)
  Sender: FDA-Public Use
  Company Number: US-009507513-1901USA012267

PATIENT
  Sex: Female
  Weight: 45.4 kg

DRUGS (2)
  1. KEYTRUDA [Suspect]
     Active Substance: PEMBROLIZUMAB
     Indication: ADRENAL GLAND CANCER
     Dosage: UNK
     Route: 042
     Dates: start: 2018
  2. KETOCONAZOLE. [Concomitant]
     Active Substance: KETOCONAZOLE
     Indication: ADRENAL GLAND CANCER
     Dosage: UNK
     Route: 048
     Dates: start: 2018

REACTIONS (4)
  - Product use in unapproved indication [Unknown]
  - Malignant neoplasm progression [Fatal]
  - Autoimmune hepatitis [Fatal]
  - Asthenia [Unknown]

NARRATIVE: CASE EVENT DATE: 2018
